FAERS Safety Report 21397918 (Version 1)
Quarter: 2022Q3

REPORT INFORMATION
  Report Type: Report from Study
  Country: DE (occurrence: DE)
  Receive Date: 20220930
  Receipt Date: 20220930
  Transmission Date: 20221027
  Serious: Yes (Other)
  Sender: FDA-Public Use
  Company Number: DE-AMGEN-DEUNI2022168410

PATIENT
  Age: 68 Year
  Sex: Male
  Weight: 101 kg

DRUGS (10)
  1. PANITUMUMAB [Suspect]
     Active Substance: PANITUMUMAB
     Indication: Colorectal cancer metastatic
     Dosage: 608 MILLIGRAM
     Route: 040
     Dates: start: 20191028
  2. LEUCOVORIN [Suspect]
     Active Substance: LEUCOVORIN
     Indication: Colorectal cancer metastatic
     Dosage: 956 MILLIGRAM
     Route: 065
     Dates: start: 20191028
  3. FLUOROURACIL [Suspect]
     Active Substance: FLUOROURACIL
     Indication: Colorectal cancer metastatic
     Dosage: 956 MILLIGRAM
     Route: 040
     Dates: start: 20191028
  4. FLUOROURACIL [Suspect]
     Active Substance: FLUOROURACIL
     Dosage: 5736 MILLIGRAM
     Route: 040
     Dates: start: 20191028
  5. OXALIPLATIN [Suspect]
     Active Substance: OXALIPLATIN
     Indication: Colorectal cancer metastatic
     Dosage: 203 MILLIGRAM
     Route: 065
     Dates: start: 20191028
  6. OXALIPLATIN [Suspect]
     Active Substance: OXALIPLATIN
     Dosage: 162 MILLIGRAM
     Route: 065
     Dates: start: 20200414
  7. MOVICOL [Concomitant]
     Active Substance: POLYETHYLENE GLYCOL 3350\POTASSIUM CHLORIDE\SODIUM BICARBONATE\SODIUM CHLORIDE
     Indication: Constipation
     Dosage: 13.8 GRAM, AS NECESSARY
     Route: 048
     Dates: start: 20191030
  8. MINOCYCLINE HYDROCHLORIDE [Concomitant]
     Active Substance: MINOCYCLINE HYDROCHLORIDE
     Indication: Acne
     Dosage: 50 MILLIGRAM, BID
     Route: 048
     Dates: start: 20191028
  9. MAGNESIUM [Concomitant]
     Active Substance: MAGNESIUM
     Indication: Magnesium deficiency
     Dosage: 90 MILLIGRAM, QD/TID
     Route: 048
     Dates: start: 20200108
  10. XUSAL [Concomitant]
     Active Substance: LEVOCETIRIZINE DIHYDROCHLORIDE
     Indication: Urticaria
     Dosage: 5 MILLIGRAM, QD
     Route: 048
     Dates: start: 20191209, end: 20200107

REACTIONS (1)
  - Polyneuropathy [Unknown]

NARRATIVE: CASE EVENT DATE: 20200414
